FAERS Safety Report 6756782-7 (Version None)
Quarter: 2010Q2

REPORT INFORMATION
  Report Type: 
  Country: None (occurrence: None)
  Receive Date: 20100604
  Receipt Date: 20100527
  Transmission Date: 20101027
  Serious: Yes (Other)
  Sender: FDA-Public Use
  Company Number: US-JNJFOC-20100600107

PATIENT
  Sex: Male
  Weight: 117.94 kg

DRUGS (19)
  1. TYLOX [Suspect]
     Indication: PROCEDURAL PAIN
     Route: 048
  2. NIASPAN [Suspect]
     Indication: BLOOD CHOLESTEROL INCREASED
     Route: 048
  3. NIASPAN [Suspect]
     Route: 048
  4. NIASPAN [Suspect]
     Route: 048
  5. NIASPAN [Suspect]
     Route: 048
  6. NIASPAN [Suspect]
     Route: 048
  7. NIASPAN [Suspect]
     Route: 048
  8. NIASPAN [Suspect]
     Indication: BLOOD TRIGLYCERIDES INCREASED
     Route: 048
  9. NIASPAN [Suspect]
     Route: 048
  10. NIASPAN [Suspect]
     Route: 048
  11. NIASPAN [Suspect]
     Route: 048
  12. NIASPAN [Suspect]
     Route: 048
  13. NIASPAN [Suspect]
     Route: 048
  14. PERCOCET [Suspect]
     Indication: DRUG USE FOR UNKNOWN INDICATION
     Route: 065
  15. FENOFIBRATE [Concomitant]
     Indication: BLOOD CHOLESTEROL INCREASED
     Route: 065
  16. PRAVASTATIN [Concomitant]
     Indication: BLOOD CHOLESTEROL INCREASED
     Route: 065
  17. LISINOPRIL [Concomitant]
     Indication: OEDEMA PERIPHERAL
     Route: 065
  18. HYDROCODONE [Concomitant]
     Indication: PAIN IN EXTREMITY
     Dosage: 1-2 PILLS DAILY
     Route: 065
  19. OMEGA-3 MARINE TRIGLYCERIDES [Concomitant]
     Indication: NUTRITIONAL SUPPORT
     Dosage: 4 DOSAGE FORM (1 DOSAGE FORM, 4 IN 1 DAY)
     Route: 065

REACTIONS (3)
  - BLOOD CHOLESTEROL INCREASED [None]
  - FLUSHING [None]
  - VERTIGO [None]
